FAERS Safety Report 17117295 (Version 1)
Quarter: 2019Q4

REPORT INFORMATION
  Report Type: Spontaneous
  Country: US (occurrence: US)
  Receive Date: 20191205
  Receipt Date: 20191205
  Transmission Date: 20200122
  Serious: No
  Sender: FDA-Public Use
  Company Number: US-TEVA-2019-US-1147763

PATIENT
  Sex: Female

DRUGS (1)
  1. BUPRENORPHINE TRANSDERMAL SYSTEM [Suspect]
     Active Substance: BUPRENORPHINE
     Indication: PAIN
     Dosage: DOSE STRENGTH:  10 MCG/HR
     Route: 062

REACTIONS (5)
  - Product use complaint [Unknown]
  - Ill-defined disorder [Unknown]
  - Product adhesion issue [Unknown]
  - Administration site dermatitis [Unknown]
  - Product use in unapproved indication [Unknown]
